FAERS Safety Report 17932526 (Version 1)
Quarter: 2020Q2

REPORT INFORMATION
  Report Type: Spontaneous
  Country: CA (occurrence: CA)
  Receive Date: 20200623
  Receipt Date: 20200623
  Transmission Date: 20200714
  Serious: Yes (Hospitalization)
  Sender: FDA-Public Use
  Company Number: CA-ROCHE-2626897

PATIENT
  Age: 86 Year
  Sex: Female
  Weight: 51 kg

DRUGS (5)
  1. OSELTAMIVIR [Suspect]
     Active Substance: OSELTAMIVIR
     Indication: ANTIVIRAL PROPHYLAXIS
     Dosage: 8.0 DAYS
     Route: 048
  2. ACETAMINOPHEN. [Concomitant]
     Active Substance: ACETAMINOPHEN
     Indication: ANTIVIRAL PROPHYLAXIS
  3. POLYETHYLENE GLYCOL [MACROGOL] [Concomitant]
     Active Substance: POLYETHYLENE GLYCOLS
     Indication: ANTIVIRAL PROPHYLAXIS
  4. ALMAGEL [ALUMINIUM HYDROXIDE;MAGNESIUM HYDROXIDE] [Concomitant]
     Active Substance: ALUMINUM HYDROXIDE\MAGNESIUM HYDROXIDE
     Indication: ANTIVIRAL PROPHYLAXIS
  5. RISEDRONATE SODIUM. [Concomitant]
     Active Substance: RISEDRONATE SODIUM
     Indication: ANTIVIRAL PROPHYLAXIS

REACTIONS (2)
  - Abdominal pain upper [Recovered/Resolved]
  - Hepatic enzyme increased [Recovered/Resolved]
